FAERS Safety Report 19794496 (Version 1)
Quarter: 2021Q3

REPORT INFORMATION
  Report Type: Report from Study
  Country: US (occurrence: US)
  Receive Date: 20210907
  Receipt Date: 20210907
  Transmission Date: 20211014
  Serious: Yes (Hospitalization, Other)
  Sender: FDA-Public Use
  Company Number: US-GILEAD-2021-0547049

PATIENT
  Age: 27 Year
  Sex: Male

DRUGS (1)
  1. AZTREONAM LYSINE [Suspect]
     Active Substance: AZTREONAM LYSINE
     Indication: CYSTIC FIBROSIS
     Dosage: 75 MG TID 28 DAYS ON 28 DAYS OFF ALTERNATING WITH TOBI
     Route: 065
     Dates: start: 20161129

REACTIONS (11)
  - Balance disorder [Unknown]
  - Cough [Unknown]
  - Nephrolithiasis [Unknown]
  - Headache [Unknown]
  - Fall [Unknown]
  - Pyrexia [Unknown]
  - Haematuria [Unknown]
  - Dysuria [Unknown]
  - Pain [Unknown]
  - Bladder disorder [Unknown]
  - Arthralgia [Unknown]
